FAERS Safety Report 9146931 (Version 1)
Quarter: 2013Q1

REPORT INFORMATION
  Report Type: Spontaneous
  Country: US (occurrence: None)
  Receive Date: 20130228
  Receipt Date: 20130228
  Transmission Date: 20140127
  Serious: Yes (Disabling, Other)
  Sender: FDA-Public Use
  Company Number: None

PATIENT
  Age: 64 Year
  Sex: Male
  Weight: 99.79 kg

DRUGS (1)
  1. LEVOFLOXACIN [Suspect]
     Indication: SINUSITIS
     Dosage: 1 DAYILY
     Dates: start: 20130110, end: 20130114

REACTIONS (7)
  - Carpal tunnel syndrome [None]
  - Arthralgia [None]
  - Joint stiffness [None]
  - Back pain [None]
  - Neck pain [None]
  - Musculoskeletal stiffness [None]
  - Musculoskeletal stiffness [None]
